FAERS Safety Report 8480317-4 (Version None)
Quarter: 2012Q2

REPORT INFORMATION
  Report Type: 
  Country: None (occurrence: None)
  Receive Date: 20120629
  Receipt Date: 20120626
  Transmission Date: 20120825
  Serious: No
  Sender: FDA-Public Use
  Company Number: US-AMGEN-USASP2011045946

PATIENT
  Age: 61 Year
  Sex: Female

DRUGS (1)
  1. ENBREL [Suspect]
     Indication: RHEUMATOID ARTHRITIS
     Dosage: 50 MG, QWK
     Dates: start: 20110419

REACTIONS (6)
  - FIBROMYALGIA [None]
  - FATIGUE [None]
  - LOCAL SWELLING [None]
  - ERYTHEMA [None]
  - PAIN [None]
  - MEMORY IMPAIRMENT [None]
